FAERS Safety Report 5933921-9 (Version None)
Quarter: 2008Q4

REPORT INFORMATION
  Report Type: 
  Country: None (occurrence: None)
  Receive Date: 20081027
  Receipt Date: 20081014
  Transmission Date: 20090506
  Serious: Yes (Hospitalization)
  Sender: FDA-Public Use
  Company Number: 237870J08USA

PATIENT
  Age: 54 Year
  Sex: Male
  Weight: 84 kg

DRUGS (4)
  1. REBIF [Suspect]
     Indication: MULTIPLE SCLEROSIS
     Dosage: 44 MCG, 3 IN 1 WEEKS, SUBCUTANEOUS
     Route: 058
     Dates: start: 20071005
  2. BACLOFEN [Concomitant]
  3. PROVIGIL [Concomitant]
  4. ZOCOR [Concomitant]

REACTIONS (6)
  - BACTERAEMIA [None]
  - CELLULITIS [None]
  - CHEST WALL ABSCESS [None]
  - INDURATION [None]
  - STAPHYLOCOCCAL INFECTION [None]
  - WOUND SECRETION [None]
